FAERS Safety Report 10781487 (Version 1)
Quarter: 2015Q1

REPORT INFORMATION
  Report Type: Spontaneous
  Country: US (occurrence: None)
  Receive Date: 20150209
  Receipt Date: 20150209
  Transmission Date: 20150721
  Serious: Yes (Disabling)
  Sender: FDA-Public Use
  Company Number: None

PATIENT
  Age: 39 Year
  Sex: Female
  Weight: 83.92 kg

DRUGS (1)
  1. LATUDA [Suspect]
     Active Substance: LURASIDONE HYDROCHLORIDE
     Indication: BIPOLAR DISORDER
     Dosage: TAKEN BY MOUTH

REACTIONS (7)
  - Asthenia [None]
  - Lip disorder [None]
  - Pyrexia [None]
  - Thirst [None]
  - T-cell lymphoma [None]
  - Infection [None]
  - Dyskinesia [None]

NARRATIVE: CASE EVENT DATE: 20150128
